FAERS Safety Report 10062204 (Version 1)
Quarter: 2014Q2

REPORT INFORMATION
  Report Type: Spontaneous
  Country: FR (occurrence: FR)
  Receive Date: 20140407
  Receipt Date: 20140407
  Transmission Date: 20141212
  Serious: Yes (Hospitalization)
  Sender: FDA-Public Use
  Company Number: FR-NOVOPROD-405092

PATIENT
  Age: 77 Year
  Sex: Female

DRUGS (10)
  1. AMAREL [Concomitant]
     Dosage: 3 MG, QD
     Route: 048
  2. COVERAM [Concomitant]
     Dosage: 1 DF, QD (10/5 MG IN MORNING)
     Route: 065
  3. CORTANCYL [Concomitant]
     Dosage: 5 MG, QD
     Route: 048
  4. LASILIX                            /00032601/ [Concomitant]
     Dosage: 60 MG, QD
     Route: 048
  5. TAHOR [Concomitant]
     Dosage: 40 MG, QD
     Route: 048
  6. HEMIGOXINE NATIVELLE [Concomitant]
     Dosage: 0.125 MG, QD
     Route: 048
  7. PREVISCAN                          /00261401/ [Concomitant]
     Dosage: ACCORDING TO INR (20 MG)
     Route: 048
  8. INIPOMP [Concomitant]
     Dosage: 20 MG, QD
     Route: 065
  9. VICTOZA [Suspect]
     Indication: PRODUCT USED FOR UNKNOWN INDICATION
     Dosage: 1.8 MG, QD
     Route: 058
     Dates: start: 201101, end: 20130417
  10. STAGID [Concomitant]
     Dosage: 1400 MG, QD (700 MG IN MORNING AND IN EVENING)
     Route: 048

REACTIONS (1)
  - Pancreatic mass [Not Recovered/Not Resolved]
